FAERS Safety Report 13565516 (Version 13)
Quarter: 2018Q2

REPORT INFORMATION
  Report Type: Spontaneous
  Country: US (occurrence: US)
  Receive Date: 20170519
  Receipt Date: 20180607
  Transmission Date: 20180711
  Serious: Yes (Hospitalization, Other)
  Sender: FDA-Public Use
  Company Number: US-ACTELION-A-US2017-154138

PATIENT
  Age: 64 Year
  Sex: Male
  Weight: 72.11 kg

DRUGS (4)
  1. VELETRI [Suspect]
     Active Substance: EPOPROSTENOL
     Indication: PULMONARY ARTERIAL HYPERTENSION
     Dosage: 30 NG/KG, PER MIN
     Route: 042
  2. ADCIRCA [Concomitant]
     Active Substance: TADALAFIL
  3. VELETRI [Suspect]
     Active Substance: EPOPROSTENOL
     Dosage: 14 NG/KG, PER MIN
     Route: 042
  4. VELETRI [Suspect]
     Active Substance: EPOPROSTENOL
     Dosage: 8 NG/KG/MIN
     Route: 042

REACTIONS (44)
  - Rhinalgia [Unknown]
  - Restless legs syndrome [Unknown]
  - Pain in extremity [Unknown]
  - Weight decreased [Unknown]
  - Erythema [Unknown]
  - Nausea [Unknown]
  - Abdominal pain upper [Unknown]
  - Mood altered [Unknown]
  - Pneumonia [Unknown]
  - Headache [Unknown]
  - Vomiting [Unknown]
  - Chapped lips [Unknown]
  - Poor quality sleep [Unknown]
  - Liver disorder [Unknown]
  - Liver transplant [Unknown]
  - Device dislocation [Unknown]
  - Pain in jaw [Unknown]
  - Myalgia [Unknown]
  - Swelling face [Unknown]
  - Eye discharge [Unknown]
  - Eyelid oedema [Unknown]
  - Oropharyngeal pain [Unknown]
  - Back pain [Unknown]
  - Pain [Unknown]
  - Decreased appetite [Unknown]
  - Abdominal distension [Unknown]
  - Insomnia [Unknown]
  - Diarrhoea [Unknown]
  - Chest pain [Unknown]
  - Nasal discomfort [Unknown]
  - Flushing [Unknown]
  - Lip dry [Unknown]
  - Abdominal discomfort [Unknown]
  - Nasopharyngitis [Unknown]
  - Hypotension [Unknown]
  - Arthralgia [Unknown]
  - Abdominal wall mass [Unknown]
  - Dysgeusia [Unknown]
  - Cough [Unknown]
  - Rhinorrhoea [Unknown]
  - Catheter management [Unknown]
  - Dyspnoea [Unknown]
  - Burning sensation [Unknown]
  - Asthenia [Unknown]

NARRATIVE: CASE EVENT DATE: 201702
